FAERS Safety Report 25721161 (Version 2)
Quarter: 2025Q3

REPORT INFORMATION
  Report Type: Spontaneous
  Country: CA (occurrence: CA)
  Receive Date: 20250825
  Receipt Date: 20250829
  Transmission Date: 20251021
  Serious: Yes (Hospitalization, Other)
  Sender: CELLTRION
  Company Number: CA-CELLTRION INC.-2025CA028969

PATIENT

DRUGS (17)
  1. INFLIXIMAB [Suspect]
     Active Substance: INFLIXIMAB
     Indication: Crohn^s disease
     Route: 042
  2. INFLIXIMAB [Suspect]
     Active Substance: INFLIXIMAB
     Route: 042
  3. INFLIXIMAB [Suspect]
     Active Substance: INFLIXIMAB
     Route: 042
  4. INFLIXIMAB [Suspect]
     Active Substance: INFLIXIMAB
     Route: 042
  5. INFLIXIMAB [Suspect]
     Active Substance: INFLIXIMAB
     Route: 042
  6. INFLIXIMAB [Suspect]
     Active Substance: INFLIXIMAB
     Route: 042
  7. AMITRIPTYLINE [Concomitant]
     Active Substance: AMITRIPTYLINE
  8. AMLODIPINE [Concomitant]
     Active Substance: AMLODIPINE BESYLATE
  9. CANNABIDIOL [Concomitant]
     Active Substance: CANNABIDIOL
  10. MIRTAZAPINE [Concomitant]
     Active Substance: MIRTAZAPINE
  11. PANTOPRAZOLE [Concomitant]
     Active Substance: PANTOPRAZOLE
  12. PREDNISONE [Concomitant]
     Active Substance: PREDNISONE
  13. SILDENAFIL [Concomitant]
     Active Substance: SILDENAFIL
  14. SYNTHROID [Concomitant]
     Active Substance: LEVOTHYROXINE SODIUM
  15. DULOXETINE [Concomitant]
     Active Substance: DULOXETINE
  16. CHOLECALCIFEROL [Concomitant]
     Active Substance: CHOLECALCIFEROL
  17. VITAMIN B12 [Concomitant]
     Active Substance: CYANOCOBALAMIN

REACTIONS (21)
  - Aggression [Not Recovered/Not Resolved]
  - Anxiety [Not Recovered/Not Resolved]
  - Arterial occlusive disease [Not Recovered/Not Resolved]
  - Cough [Not Recovered/Not Resolved]
  - Diverticulum intestinal [Not Recovered/Not Resolved]
  - Haemorrhoids [Not Recovered/Not Resolved]
  - Infusion site extravasation [Not Recovered/Not Resolved]
  - Intestinal anastomosis [Not Recovered/Not Resolved]
  - Mental disorder [Not Recovered/Not Resolved]
  - Nasal congestion [Not Recovered/Not Resolved]
  - Panic reaction [Not Recovered/Not Resolved]
  - Peripheral swelling [Not Recovered/Not Resolved]
  - Procedural pain [Not Recovered/Not Resolved]
  - Agitation [Not Recovered/Not Resolved]
  - Acute myocardial infarction [Not Recovered/Not Resolved]
  - Fatigue [Not Recovered/Not Resolved]
  - Large intestinal stenosis [Not Recovered/Not Resolved]
  - Headache [Not Recovered/Not Resolved]
  - Infusion site pain [Not Recovered/Not Resolved]
  - Pain [Not Recovered/Not Resolved]
  - Drug level below therapeutic [Not Recovered/Not Resolved]
